FAERS Safety Report 6629791-6 (Version None)
Quarter: 2010Q1

REPORT INFORMATION
  Report Type: 
  Country: None (occurrence: None)
  Receive Date: 20100311
  Receipt Date: 20090629
  Transmission Date: 20100710
  Serious: No
  Sender: FDA-Public Use
  Company Number: US-BIOGENIDEC-2009BI020129

PATIENT
  Sex: Female

DRUGS (1)
  1. AVONEX [Suspect]
     Indication: MULTIPLE SCLEROSIS

REACTIONS (6)
  - BALANCE DISORDER [None]
  - MEMORY IMPAIRMENT [None]
  - PERONEAL NERVE PALSY [None]
  - SENSORY DISTURBANCE [None]
  - TRIGEMINAL NEURALGIA [None]
  - VISUAL IMPAIRMENT [None]
